FAERS Safety Report 11293598 (Version 2)
Quarter: 2015Q3

REPORT INFORMATION
  Report Type: Spontaneous
  Country: BR (occurrence: BR)
  Receive Date: 20150722
  Receipt Date: 20150727
  Transmission Date: 20151125
  Serious: Yes (Hospitalization)
  Sender: FDA-Public Use
  Company Number: BR-PFIZER INC-2015147663

PATIENT
  Age: 39 Year
  Sex: Female
  Weight: 89 kg

DRUGS (8)
  1. FRONTAL [Suspect]
     Active Substance: ALPRAZOLAM
     Indication: PANIC DISORDER
     Dosage: 1 MG, UNK
     Route: 048
     Dates: end: 2015
  2. PANTOPRAZOLE [Concomitant]
     Active Substance: PANTOPRAZOLE SODIUM
     Indication: GASTRITIS
     Dosage: 20 MG, DAILY
     Dates: start: 2012
  3. LEVOID [Concomitant]
     Active Substance: LEVOTHYROXINE
     Indication: THYROID DISORDER
     Dosage: 38 ?G, DAILY
  4. PANTOPRAZOLE [Concomitant]
     Active Substance: PANTOPRAZOLE SODIUM
     Indication: DYSPEPSIA
  5. ADDERA D3 [Concomitant]
     Active Substance: CHOLECALCIFEROL
     Indication: MINERAL SUPPLEMENTATION
     Dosage: 1 WEEKLY
     Dates: start: 2014
  6. FRONTAL [Suspect]
     Active Substance: ALPRAZOLAM
     Indication: APPARENT DEATH
     Dosage: 1 MG, 2X/DAY (HALF TABLET AT 12:00 PM AND HALF TABLET MORE AT 07:00 PM)
     Route: 048
     Dates: start: 201504
  7. ADDERA D3 [Concomitant]
     Active Substance: CHOLECALCIFEROL
     Indication: VITAMIN SUPPLEMENTATION
  8. PURAN [Concomitant]
     Active Substance: LEVOTHYROXINE SODIUM
     Indication: THYROID DISORDER
     Dosage: 1 DF, DAILY
     Dates: start: 201310

REACTIONS (3)
  - Sluggishness [Recovered/Resolved]
  - Drug effect incomplete [Unknown]
  - Agitation [Unknown]

NARRATIVE: CASE EVENT DATE: 2015
